FAERS Safety Report 5395489-8 (Version None)
Quarter: 2007Q3

REPORT INFORMATION
  Report Type: 
  Country: None (occurrence: None)
  Receive Date: 20070724
  Receipt Date: 20070716
  Transmission Date: 20080115
  Serious: Yes (Other)
  Sender: FDA-Public Use
  Company Number: NO-JNJFOC-20070703159

PATIENT
  Sex: Male

DRUGS (1)
  1. CONCERTA [Suspect]
     Indication: DRUG USE FOR UNKNOWN INDICATION
     Dosage: WITH ALCOHOL
     Route: 048

REACTIONS (5)
  - HANGOVER [None]
  - HYPERVENTILATION [None]
  - INTENTIONAL DRUG MISUSE [None]
  - TACHYCARDIA [None]
  - VOMITING [None]
